FAERS Safety Report 9244610 (Version 1)
Quarter: 2013Q2

REPORT INFORMATION
  Report Type: Spontaneous
  Country: US (occurrence: US)
  Receive Date: 20130422
  Receipt Date: 20130422
  Transmission Date: 20140414
  Serious: Yes (Hospitalization, Other)
  Sender: FDA-Public Use
  Company Number: US-PFIZER INC-2013124263

PATIENT
  Age: 77 Year
  Sex: Female
  Weight: 79.37 kg

DRUGS (1)
  1. REVATIO [Suspect]
     Indication: CARDIAC DISORDER
     Dosage: UNK
     Dates: start: 2011

REACTIONS (6)
  - Cardiac failure congestive [Recovering/Resolving]
  - Urinary tract infection [Recovering/Resolving]
  - Pulmonary oedema [Recovering/Resolving]
  - Renal disorder [Recovering/Resolving]
  - Hypotonia [Recovering/Resolving]
  - Weight decreased [Unknown]
